FAERS Safety Report 14558651 (Version 1)
Quarter: 2018Q1

REPORT INFORMATION
  Report Type: Report from Study
  Country: US (occurrence: US)
  Receive Date: 20180221
  Receipt Date: 20180221
  Transmission Date: 20180509
  Serious: Yes (Other)
  Sender: FDA-Public Use
  Company Number: PHEH2018US006063

PATIENT
  Sex: Female

DRUGS (1)
  1. COSENTYX [Suspect]
     Active Substance: SECUKINUMAB
     Indication: PRODUCT USED FOR UNKNOWN INDICATION
     Route: 065

REACTIONS (7)
  - Tooth loss [Unknown]
  - Rheumatoid arthritis [Unknown]
  - Joint dislocation [Unknown]
  - Finger deformity [Unknown]
  - Stress [Unknown]
  - Tongue neoplasm [Unknown]
  - Ulcer [Unknown]
